FAERS Safety Report 22147764 (Version 1)
Quarter: 2023Q1

REPORT INFORMATION
  Report Type: Spontaneous
  Country: FR (occurrence: FR)
  Receive Date: 20230328
  Receipt Date: 20230328
  Transmission Date: 20230418
  Serious: Yes (Other)
  Sender: FDA-Public Use
  Company Number: None

PATIENT
  Age: 48 Year
  Sex: Male

DRUGS (6)
  1. LINEZOLID [Suspect]
     Active Substance: LINEZOLID
     Indication: Sepsis
     Dosage: 1200MG?ROA-20045000
     Route: 042
     Dates: start: 20230131, end: 20230208
  2. PIPERACILLIN SODIUM\TAZOBACTAM SODIUM [Suspect]
     Active Substance: PIPERACILLIN SODIUM\TAZOBACTAM SODIUM
     Indication: Sepsis
     Dosage: ROA-20045000
     Route: 042
     Dates: start: 20230201, end: 20230208
  3. CEFAZOLIN SODIUM [Suspect]
     Active Substance: CEFAZOLIN SODIUM
     Indication: Sepsis
     Dosage: ROA-20045000
     Route: 042
     Dates: start: 20230131, end: 20230131
  4. MORPHINE [Concomitant]
     Active Substance: MORPHINE
     Indication: Product used for unknown indication
     Dosage: ROA-20045000
     Route: 042
     Dates: start: 20230125
  5. TRIMEBUTINE [Concomitant]
     Active Substance: TRIMEBUTINE
     Indication: Product used for unknown indication
     Dosage: 300MG?ROA-20045000
     Route: 042
     Dates: start: 20230126
  6. LOVENOX 4000 UI anti-Xa/0,4 ml, injectable solution in pre-filled syri [Concomitant]
     Indication: Product used for unknown indication
     Dosage: ROA-20066000
     Route: 058
     Dates: start: 202301

REACTIONS (1)
  - Cholestasis [Recovering/Resolving]

NARRATIVE: CASE EVENT DATE: 20230203
